FAERS Safety Report 8035552-6 (Version None)
Quarter: 2012Q1

REPORT INFORMATION
  Report Type: 
  Country: None (occurrence: None)
  Receive Date: 20120111
  Receipt Date: 20120102
  Transmission Date: 20120608
  Serious: Yes (Hospitalization)
  Sender: FDA-Public Use
  Company Number: FR-JNJFOC-20110709480

PATIENT
  Sex: Female
  Weight: 65 kg

DRUGS (9)
  1. XARELTO [Suspect]
     Dosage: 1 DF, QD
     Route: 048
     Dates: start: 20110314, end: 20110316
  2. ADAMON [Concomitant]
     Route: 048
     Dates: start: 20110314
  3. XARELTO [Suspect]
     Dosage: 1 DF, QD
     Route: 048
     Dates: start: 20110314, end: 20110316
  4. XARELTO [Suspect]
     Indication: HIP ARTHROPLASTY
     Route: 048
  5. MORPHINE [Concomitant]
     Route: 058
  6. NEXIUM [Concomitant]
     Dosage: 1 DF, QD
     Route: 048
     Dates: start: 20110314
  7. MORPHINE SULFATE [Concomitant]
     Route: 048
  8. XARELTO [Suspect]
     Indication: THROMBOSIS PROPHYLAXIS
     Route: 048
  9. ACETAMINOPHEN [Concomitant]
     Dosage: 4 DF, UNK
     Route: 042
     Dates: start: 20110314

REACTIONS (2)
  - DEEP VEIN THROMBOSIS [None]
  - DRUG INEFFECTIVE [None]
